FAERS Safety Report 22255703 (Version 2)
Quarter: 2023Q2

REPORT INFORMATION
  Report Type: Spontaneous
  Country: JP (occurrence: JP)
  Receive Date: 20230426
  Receipt Date: 20230503
  Transmission Date: 20230721
  Serious: Yes (Other)
  Sender: FDA-Public Use
  Company Number: JP-MSD-M2023-16168

PATIENT
  Sex: Female

DRUGS (1)
  1. KEYTRUDA [Suspect]
     Active Substance: PEMBROLIZUMAB
     Indication: Bladder cancer
     Dosage: 200 MILLIGRAM, Q3W
     Route: 041
     Dates: start: 2018

REACTIONS (8)
  - Sudden hearing loss [Unknown]
  - Cerumen impaction [Unknown]
  - Nail disorder [Unknown]
  - Adverse reaction [Unknown]
  - Ear pruritus [Unknown]
  - Psoriasis [Unknown]
  - Oral mucosa erosion [Unknown]
  - Pruritus [Unknown]

NARRATIVE: CASE EVENT DATE: 20220101
